FAERS Safety Report 6866251-1 (Version None)
Quarter: 2010Q3

REPORT INFORMATION
  Report Type: 
  Country: None (occurrence: None)
  Receive Date: 20100722
  Receipt Date: 20100714
  Transmission Date: 20110219
  Serious: Yes (Other)
  Sender: FDA-Public Use
  Company Number: JP-BAYER-201013544BYL

PATIENT
  Age: 73 Year
  Sex: Male

DRUGS (2)
  1. ASPIRIN [Suspect]
     Indication: CEREBRAL INFARCTION
     Route: 048
  2. CILOSTAZOL [Suspect]
     Indication: CEREBRAL INFARCTION
     Route: 048

REACTIONS (1)
  - IMPLANT SITE EFFUSION [None]
